FAERS Safety Report 8424954-1 (Version None)
Quarter: 2012Q2

REPORT INFORMATION
  Report Type: 
  Country: None (occurrence: None)
  Receive Date: 20120611
  Receipt Date: 20120606
  Transmission Date: 20120825
  Serious: No
  Sender: FDA-Public Use
  Company Number: US-PFIZER INC-2012093899

PATIENT
  Sex: Male
  Weight: 102 kg

DRUGS (17)
  1. CARVEDILOL [Concomitant]
     Indication: HYPERTENSION
     Dosage: 25 MG, 2X/DAY
     Dates: start: 19730101
  2. ALAWAY [Concomitant]
     Indication: SEASONAL ALLERGY
     Dosage: AS NEEDED
  3. LIPITOR [Concomitant]
     Dosage: 40 MG (FREQUENCY UNSPECIFIED)
  4. ZOMETA [Concomitant]
     Indication: BLOOD CALCIUM DECREASED
     Dosage: 4 MG, MONTHLY
     Route: 042
  5. NORCO [Suspect]
     Indication: BACK PAIN
     Dosage: HYDROCODONE 10 /325 ACETAMINOPHEN 325 IN THE MORNING
     Dates: start: 20120413
  6. ACETAMINOPHEN [Suspect]
     Dosage: UNK
  7. METFORMIN [Concomitant]
     Indication: TYPE 2 DIABETES MELLITUS
     Dosage: 500 MG, 2X/DAY
  8. CLONIDINE [Concomitant]
     Indication: BLOOD PRESSURE SYSTOLIC ABNORMAL
     Dosage: AS NEEDED
     Dates: start: 19730101
  9. ALPRAZOLAM [Concomitant]
     Indication: ANXIETY
     Dosage: 0.5 MG, 1X/DAY
  10. PROTONIX [Concomitant]
     Indication: GASTROOESOPHAGEAL REFLUX DISEASE
  11. MORPHINE SULFATE [Concomitant]
     Indication: MUSCULOSKELETAL PAIN
     Dosage: 2X/DAY (EVERY 12 HOURS)
     Dates: start: 20120101
  12. SUTENT [Suspect]
     Indication: RENAL CELL CARCINOMA
     Dosage: 50 MG, CYCLIC DAILY
     Dates: start: 20120524, end: 20120531
  13. HYDROCHLOROTHIAZIDE [Concomitant]
     Indication: HYPERTENSION
     Dosage: 25 MG, 1X/DAY
     Dates: start: 19730101
  14. LOTREL [Concomitant]
     Indication: HYPERTENSION
     Dosage: 10/20 MG, 1X/DAY
     Dates: start: 19730101
  15. FLONASE [Concomitant]
     Indication: HYPERSENSITIVITY
     Dosage: UNK, AS NEEDED
  16. PROTONIX [Concomitant]
     Indication: DYSPEPSIA
     Dosage: 40 MG, 1X/DAY
  17. SUTENT [Suspect]
     Indication: METASTATIC RENAL CELL CARCINOMA
     Dosage: 50 MG,DAILY (FOR 28 DAYS FOLLOWED BY REST OF 14 DAYS)
     Route: 048
     Dates: start: 20120412, end: 20120510

REACTIONS (7)
  - BLOOD BILIRUBIN INCREASED [None]
  - SOMNOLENCE [None]
  - MUSCULOSKELETAL PAIN [None]
  - PAIN IN EXTREMITY [None]
  - DYSPEPSIA [None]
  - BACK PAIN [None]
  - CONSTIPATION [None]
